FAERS Safety Report 9726426 (Version 1)
Quarter: 2013Q4

REPORT INFORMATION
  Report Type: Spontaneous
  Country: US (occurrence: US)
  Receive Date: 20131203
  Receipt Date: 20131203
  Transmission Date: 20140711
  Serious: Yes (Life-Threatening, Hospitalization, Other)
  Sender: FDA-Public Use
  Company Number: US-BAYER-2013-145703

PATIENT
  Age: 33 Year
  Sex: Female

DRUGS (1)
  1. MIRENA [Suspect]
     Dosage: 20 MCG/24HR, CONT
     Route: 015
     Dates: start: 2012, end: 2013

REACTIONS (10)
  - Uterine perforation [None]
  - Genital haemorrhage [None]
  - Procedural pain [None]
  - Device difficult to use [None]
  - Anxiety [None]
  - Pain [None]
  - Injury [None]
  - Infection [None]
  - Anhedonia [None]
  - General physical health deterioration [None]
